FAERS Safety Report 9100686 (Version 1)
Quarter: 2013Q1

REPORT INFORMATION
  Report Type: Spontaneous
  Country: US (occurrence: US)
  Receive Date: 20130129
  Receipt Date: 20130129
  Transmission Date: 20140127
  Serious: No
  Sender: FDA-Public Use
  Company Number: US-TARO-2012P1051629

PATIENT
  Age: 67 Year
  Sex: Female
  Weight: 89.81 kg

DRUGS (6)
  1. FLUOCINONIDE 0.05% [Suspect]
     Indication: PSORIASIS
     Route: 047
     Dates: start: 20120711, end: 20120711
  2. FLUOCINONIDE 0.05% [Suspect]
     Indication: PSORIASIS
     Route: 061
     Dates: start: 20120711
  3. SYNTHROID [Concomitant]
  4. METFORMIN [Concomitant]
  5. GLIPIZIDE [Concomitant]
  6. LOSARTAN [Concomitant]

REACTIONS (2)
  - Eye pain [Recovered/Resolved]
  - Accidental exposure to product [Recovered/Resolved]
